FAERS Safety Report 4714431-3 (Version None)
Quarter: 2005Q3

REPORT INFORMATION
  Report Type: 
  Country: None (occurrence: None)
  Receive Date: 20050705
  Receipt Date: 20050104
  Transmission Date: 20060218
  Serious: Yes (Hospitalization, Disabling, Other)
  Sender: FDA-Public Use
  Company Number: 2005-0007910

PATIENT
  Age: 40 Year
  Sex: Male
  Weight: 60.1923 kg

DRUGS (10)
  1. VIREAD [Suspect]
     Indication: HIV INFECTION
     Dosage: 300 MG, 1 IN 1 D, ORAL
     Route: 048
     Dates: start: 20040416, end: 20040903
  2. ATAZANAVIR (ATAZANAVIR) [Concomitant]
  3. DIDANOSINE [Concomitant]
  4. RITONAVIR (RITONAVIR) [Concomitant]
  5. CITALOPRAM (CITALOPRAM) [Concomitant]
  6. PENTAMIDINE (PENTAMIDINE) [Concomitant]
  7. SIMETHICONE (DIMETICONE, ACTIVATED) [Concomitant]
  8. TRAZODONE HCL [Concomitant]
  9. CLOTRIMAZOLE (CLOTRIMAZOLE) [Concomitant]
  10. ALOE VESTA OINTMENT (ALOE FEROX EXTRACT) [Concomitant]

REACTIONS (1)
  - FANCONI SYNDROME [None]
